FAERS Safety Report 22256176 (Version 1)
Quarter: 2023Q2

REPORT INFORMATION
  Report Type: Spontaneous
  Country: MY (occurrence: MY)
  Receive Date: 20230426
  Receipt Date: 20230426
  Transmission Date: 20230722
  Serious: Yes (Other)
  Sender: FDA-Public Use
  Company Number: MY-LUNDBECK-DKLU3060480

PATIENT
  Sex: Female
  Weight: 50 kg

DRUGS (3)
  1. ESCITALOPRAM OXALATE [Suspect]
     Active Substance: ESCITALOPRAM OXALATE
     Indication: Product used for unknown indication
  2. BRINTELLIX [Suspect]
     Active Substance: VORTIOXETINE HYDROBROMIDE
     Indication: Generalised anxiety disorder
     Dosage: 5 MG, QHS
     Route: 048
     Dates: start: 20230318, end: 20230331
  3. BRINTELLIX [Suspect]
     Active Substance: VORTIOXETINE HYDROBROMIDE
     Indication: Depressive symptom

REACTIONS (2)
  - Pruritus [Recovered/Resolved with Sequelae]
  - Sexual dysfunction [Unknown]

NARRATIVE: CASE EVENT DATE: 20230325
